FAERS Safety Report 7997323-6 (Version None)
Quarter: 2011Q4

REPORT INFORMATION
  Report Type: 
  Country: None (occurrence: None)
  Receive Date: 20111212
  Receipt Date: 20111202
  Transmission Date: 20120403
  Serious: Yes (Other)
  Sender: FDA-Public Use
  Company Number: 2011029936

PATIENT
  Age: 59 Year
  Sex: Female
  Weight: 136.5327 kg

DRUGS (15)
  1. LASIX [Concomitant]
  2. HIZENTRA [Suspect]
     Indication: IMMUNODEFICIENCY COMMON VARIABLE
     Dosage: SEE IMAGE
     Route: 058
     Dates: start: 20110928
  3. SINGULAIR [Concomitant]
  4. KLOR-CON [Concomitant]
  5. OMEPRAZOLE [Concomitant]
  6. DICLOFENAC SODIUM [Concomitant]
  7. ZETIA [Concomitant]
  8. EFFEXOR [Concomitant]
  9. ALDACTONE [Concomitant]
  10. NEURONTIN [Concomitant]
  11. HIZENTRA [Suspect]
  12. HIZENTRA [Suspect]
  13. HIZENTRA [Suspect]
  14. HIZENTRA [Suspect]
  15. LOSARTAN POTASSIUM [Concomitant]

REACTIONS (5)
  - ARTHRITIS [None]
  - MUSCULOSKELETAL STIFFNESS [None]
  - ARTHRALGIA [None]
  - INFUSION SITE PRURITUS [None]
  - URINARY TRACT INFECTION [None]
